FAERS Safety Report 19184832 (Version 1)
Quarter: 2021Q2

REPORT INFORMATION
  Report Type: Spontaneous
  Country: US (occurrence: US)
  Receive Date: 20210427
  Receipt Date: 20210427
  Transmission Date: 20210717
  Serious: No
  Sender: FDA-Public Use
  Company Number: US-TEVA-2021-US-1898599

PATIENT

DRUGS (7)
  1. GREENSTONE ALPRAZOLAM [Suspect]
     Active Substance: ALPRAZOLAM
     Indication: ANXIETY
     Route: 065
  2. CLONAZEPAM? TEVA [Suspect]
     Active Substance: CLONAZEPAM
     Indication: ANXIETY
     Route: 065
  3. GENEVA ALPRAZOLAM [Suspect]
     Active Substance: ALPRAZOLAM
     Indication: ANXIETY
     Route: 065
  4. ACCORD ALPRAZOLAM [Suspect]
     Active Substance: ALPRAZOLAM
     Indication: ANXIETY
     Route: 065
  5. UPJOHN ALPRAZOLAM [Suspect]
     Active Substance: ALPRAZOLAM
     Indication: ANXIETY
     Route: 065
  6. ALPRAZOLAM?TEVA [Suspect]
     Active Substance: ALPRAZOLAM
     Indication: ANXIETY
     Route: 065
  7. ALPRAZOLAM ACTAVIS [Suspect]
     Active Substance: ALPRAZOLAM
     Indication: ANXIETY
     Route: 065

REACTIONS (6)
  - Somnolence [Unknown]
  - Adverse drug reaction [Unknown]
  - Depression [Unknown]
  - Feeling jittery [Unknown]
  - Adverse event [Unknown]
  - Drug ineffective [Unknown]
